FAERS Safety Report 5141508-3 (Version None)
Quarter: 2006Q4

REPORT INFORMATION
  Report Type: 
  Country: None (occurrence: None)
  Receive Date: 20061030
  Receipt Date: 20061030
  Transmission Date: 20070319
  Serious: Yes (Other)
  Sender: FDA-Public Use
  Company Number: None

PATIENT
  Age: 13 Year
  Sex: Male
  Weight: 72.5755 kg

DRUGS (1)
  1. ACYCLOVIR [Suspect]
     Indication: HERPES ZOSTER
     Dosage: 1 PILL 3X DAILY PO
     Route: 048
     Dates: start: 20061026, end: 20061028

REACTIONS (3)
  - DIARRHOEA HAEMORRHAGIC [None]
  - STOMACH DISCOMFORT [None]
  - VOMITING [None]
